FAERS Safety Report 7786337-7 (Version None)
Quarter: 2011Q3

REPORT INFORMATION
  Report Type: 
  Country: None (occurrence: None)
  Receive Date: 20110927
  Receipt Date: 20110916
  Transmission Date: 20111222
  Serious: Yes (Hospitalization)
  Sender: FDA-Public Use
  Company Number: 1046619

PATIENT
  Sex: Female

DRUGS (2)
  1. GEMCITABINE HYDROCHLORIDE [Suspect]
     Indication: SARCOMA
  2. DOCETAXEL [Suspect]
     Indication: SARCOMA

REACTIONS (6)
  - POSTERIOR REVERSIBLE ENCEPHALOPATHY SYNDROME [None]
  - REFRACTORY CANCER [None]
  - VASOGENIC CEREBRAL OEDEMA [None]
  - CEREBROVASCULAR SPASM [None]
  - CYTOTOXIC OEDEMA [None]
  - STATUS EPILEPTICUS [None]
